FAERS Safety Report 23387410 (Version 1)
Quarter: 2024Q1

REPORT INFORMATION
  Report Type: Spontaneous
  Country: NL (occurrence: None)
  Receive Date: 20240110
  Receipt Date: 20240110
  Transmission Date: 20240410
  Serious: Yes (Life-Threatening)
  Sender: FDA-Public Use
  Company Number: 2024A003469

PATIENT
  Age: 84 Year
  Sex: Male
  Weight: 80 kg

DRUGS (9)
  1. DAPAGLIFLOZIN [Suspect]
     Active Substance: DAPAGLIFLOZIN
     Indication: Cardiac failure
     Dosage: 1DD1
     Dates: start: 20231104, end: 20231229
  2. FUROSEMIDE [Concomitant]
     Active Substance: FUROSEMIDE
     Dosage: 20 MG (MILLIGRAM)
  3. VENTOLIN [Concomitant]
     Active Substance: ALBUTEROL SULFATE
     Dosage: 200 ?G/DOSE (MICROGRAM PER DOSE)
  4. METOPROLOL [Concomitant]
     Active Substance: METOPROLOL
     Dosage: 50 MG (MILLIGRAM)
  5. BECLOMETHASONE DIPROPIONATE\FORMOTEROL [Concomitant]
     Active Substance: BECLOMETHASONE DIPROPIONATE\FORMOTEROL
     Dosage: 100/6 ?G/DOSE (MICROGRAM PER DOSE)
  6. MELATONIN [Concomitant]
     Active Substance: MELATONIN
     Dosage: 1 MG (MILLIGRAM)
  7. TIOTROPIUM [Concomitant]
     Active Substance: TIOTROPIUM
     Dosage: 18 ?G (MICROGRAM)
  8. ENTRESTO [Concomitant]
     Active Substance: SACUBITRIL\VALSARTAN
     Dosage: 24/26 MG (MILLIGRAM)
  9. LAMOTRIGINE [Concomitant]
     Active Substance: LAMOTRIGINE
     Dosage: 25 MG (MILLIGRAM)

REACTIONS (1)
  - Systemic candida [Not Recovered/Not Resolved]
